FAERS Safety Report 4473442-6 (Version None)
Quarter: 2004Q3

REPORT INFORMATION
  Report Type: 
  Country: None (occurrence: None)
  Receive Date: 20040920
  Receipt Date: 20040623
  Transmission Date: 20050211
  Serious: Yes (Hospitalization)
  Sender: FDA-Public Use
  Company Number: S04-USA-03702-01

PATIENT
  Sex: Female

DRUGS (8)
  1. CELEXA [Suspect]
     Indication: DEPRESSION
     Dosage: 80 MG QD PO
     Route: 048
     Dates: start: 20020501, end: 20021201
  2. CELEXA [Suspect]
     Indication: DEPRESSION
     Dosage: 60 MG QD PO
     Route: 048
     Dates: start: 20021201, end: 20021201
  3. CELEXA [Suspect]
     Indication: DEPRESSION
     Dosage: 40 MG QD PO
     Route: 048
     Dates: start: 20021201, end: 20021201
  4. CELEXA [Suspect]
     Indication: DEPRESSION
     Dosage: 20 MG QD PO
     Route: 048
     Dates: start: 20021201, end: 20030101
  5. CELEXA [Suspect]
     Indication: DEPRESSION
     Dosage: 10 MG QD PO
     Route: 048
     Dates: start: 20030101, end: 20030127
  6. CELEXA [Suspect]
     Indication: DEPRESSION
     Dates: start: 20020301, end: 20020101
  7. CELEXA [Suspect]
     Indication: DEPRESSION
     Dates: start: 20020101, end: 20020501
  8. PAXIL [Concomitant]

REACTIONS (8)
  - AMNESIA [None]
  - HALLUCINATION, AUDITORY [None]
  - HEADACHE [None]
  - MOOD SWINGS [None]
  - MYALGIA [None]
  - PARAESTHESIA [None]
  - SUICIDAL IDEATION [None]
  - THINKING ABNORMAL [None]
